FAERS Safety Report 17365971 (Version 2)
Quarter: 2020Q1

REPORT INFORMATION
  Report Type: Spontaneous
  Country: IT (occurrence: IT)
  Receive Date: 20200204
  Receipt Date: 20200311
  Transmission Date: 20200409
  Serious: Yes (Other)
  Sender: FDA-Public Use
  Company Number: NVSC2020IT025739

PATIENT

DRUGS (4)
  1. RITUXIMAB. [Suspect]
     Active Substance: RITUXIMAB
     Indication: DIFFUSE LARGE B-CELL LYMPHOMA
     Dosage: 375 MG/SQM ON DAY 2
     Route: 065
     Dates: start: 200410, end: 201410
  2. DEXAMETHASONE. [Suspect]
     Active Substance: DEXAMETHASONE
     Indication: DIFFUSE LARGE B-CELL LYMPHOMA
     Dosage: 40 MG/DIE ON DAYS 1-4, REPEATED EVRY 21 DAYS
     Route: 065
     Dates: start: 200410, end: 201410
  3. CYTARABINE. [Suspect]
     Active Substance: CYTARABINE
     Indication: DIFFUSE LARGE B-CELL LYMPHOMA
     Dosage: 2 G/SQM BID ON DAY 2
     Route: 065
     Dates: start: 200410, end: 201410
  4. OXALIPLATIN. [Suspect]
     Active Substance: OXALIPLATIN
     Indication: DIFFUSE LARGE B-CELL LYMPHOMA
     Dosage: 130 MG/SQM ON DAY 1, REPEATED EVRY 21 DAYS
     Route: 065
     Dates: start: 200410, end: 201410

REACTIONS (2)
  - Product use in unapproved indication [Unknown]
  - Sepsis [Unknown]
